FAERS Safety Report 10243787 (Version 2)
Quarter: 2014Q2

REPORT INFORMATION
  Report Type: Spontaneous
  Country: BR (occurrence: BR)
  Receive Date: 20140618
  Receipt Date: 20140618
  Transmission Date: 20141212
  Serious: Yes (Other)
  Sender: FDA-Public Use
  Company Number: BR-PFIZER INC-2013339990

PATIENT
  Age: 38 Year
  Sex: Female

DRUGS (1)
  1. NORDETTE [Suspect]
     Indication: CONTRACEPTION
     Dosage: 1 DF, 1X/DAY
     Route: 048
     Dates: start: 20130818, end: 20131115

REACTIONS (7)
  - Abortion spontaneous [Unknown]
  - Drug ineffective [Unknown]
  - Unintended pregnancy [Unknown]
  - Abdominal pain [Unknown]
  - Spinal pain [Unknown]
  - Pain [Unknown]
  - Abdominal distension [Unknown]
